FAERS Safety Report 14206027 (Version 1)
Quarter: 2017Q4

REPORT INFORMATION
  Report Type: Spontaneous
  Country: US (occurrence: US)
  Receive Date: 20171120
  Receipt Date: 20171120
  Transmission Date: 20180321
  Serious: Yes (Hospitalization)
  Sender: FDA-Public Use
  Company Number: US-UNITED THERAPEUTICS-UNT-2017-016183

PATIENT
  Sex: Female

DRUGS (1)
  1. TYVASO [Suspect]
     Active Substance: TREPROSTINIL
     Indication: PULMONARY ARTERIAL HYPERTENSION
     Dosage: 54 ?G, QID
     Dates: start: 20170705

REACTIONS (6)
  - Headache [Unknown]
  - Fatigue [Unknown]
  - Pulmonary vascular disorder [Unknown]
  - Swelling [Unknown]
  - Cough [Unknown]
  - Flushing [Unknown]

NARRATIVE: CASE EVENT DATE: 2017
